FAERS Safety Report 7917105-0 (Version None)
Quarter: 2011Q4

REPORT INFORMATION
  Report Type: 
  Country: None (occurrence: None)
  Receive Date: 20111114
  Receipt Date: 20111028
  Transmission Date: 20120403
  Serious: Yes (Death)
  Sender: FDA-Public Use
  Company Number: 2011MA016145

PATIENT
  Age: 60 Year
  Sex: Female

DRUGS (6)
  1. DESMOPRESSIN ACETATE [Suspect]
     Indication: LUNG ADENOCARCINOMA
  2. GEMCITABINE HYDROCHLORIDE [Suspect]
     Indication: LUNG ADENOCARCINOMA
  3. CISPLATIN [Suspect]
     Indication: LUNG ADENOCARCINOMA
  4. LEVOTHYROXINE SODIUM [Suspect]
     Indication: LUNG ADENOCARCINOMA
  5. CORTICOSTEROIDS (CORTICOSTEROIDS) [Suspect]
     Indication: LUNG ADENOCARCINOMA
  6. ERLOTINIB HYDROCHLORIDE [Suspect]
     Indication: LUNG ADENOCARCINOMA

REACTIONS (8)
  - HYPERNATRAEMIA [None]
  - ASTHENIA [None]
  - LUNG ADENOCARCINOMA [None]
  - METASTASES TO PITUITARY GLAND [None]
  - SOMNOLENCE [None]
  - DIPLOPIA [None]
  - HYPOPITUITARISM [None]
  - HEADACHE [None]
